FAERS Safety Report 24678455 (Version 2)
Quarter: 2024Q4

REPORT INFORMATION
  Report Type: Report from Study
  Country: IN (occurrence: IN)
  Receive Date: 20241129
  Receipt Date: 20241217
  Transmission Date: 20250114
  Serious: Yes (Death, Hospitalization)
  Sender: ROCHE
  Company Number: IN-ROCHE-10000081598

PATIENT
  Age: 75 Year
  Sex: Male

DRUGS (3)
  1. TECENTRIQ [Suspect]
     Active Substance: ATEZOLIZUMAB
     Indication: Lung cancer metastatic
     Route: 042
     Dates: start: 20240826
  2. AVASTIN [Suspect]
     Active Substance: BEVACIZUMAB
     Indication: Lung cancer metastatic
     Route: 042
     Dates: start: 20240826
  3. AVASTIN [Suspect]
     Active Substance: BEVACIZUMAB
     Route: 042

REACTIONS (3)
  - Pneumonia [Unknown]
  - Ear infection [Not Recovered/Not Resolved]
  - Death [Fatal]
